FAERS Safety Report 9284267 (Version 1)
Quarter: 2013Q2

REPORT INFORMATION
  Report Type: Report from Study
  Country: US (occurrence: US)
  Receive Date: 20130510
  Receipt Date: 20130510
  Transmission Date: 20140414
  Serious: Yes (Other)
  Sender: FDA-Public Use
  Company Number: US-US-EMD SERONO, INC.-7209431

PATIENT
  Age: 42 Year
  Sex: Male

DRUGS (2)
  1. EGRIFTA [Suspect]
     Indication: LIPODYSTROPHY ACQUIRED
     Dates: start: 20121101
  2. EGRIFTA [Suspect]
     Dates: end: 201302

REACTIONS (3)
  - Nephrolithiasis [Unknown]
  - Pruritus [Unknown]
  - Rash generalised [Unknown]
